FAERS Safety Report 24861272 (Version 1)
Quarter: 2025Q1

REPORT INFORMATION
  Report Type: Spontaneous
  Country: US (occurrence: US)
  Receive Date: 20250120
  Receipt Date: 20250120
  Transmission Date: 20250408
  Serious: No
  Sender: AMGEN
  Company Number: US-AMGEN-USASP2025007588

PATIENT

DRUGS (1)
  1. TEPEZZA [Suspect]
     Active Substance: TEPROTUMUMAB-TRBW
     Indication: Endocrine ophthalmopathy
     Dosage: UNK UNK, Q3WK
     Route: 040
     Dates: start: 20241212

REACTIONS (4)
  - Infusion site rash [Unknown]
  - Vision blurred [Unknown]
  - Abdominal pain upper [Unknown]
  - Muscle spasms [Unknown]
